FAERS Safety Report 16290798 (Version 4)
Quarter: 2022Q2

REPORT INFORMATION
  Report Type: Spontaneous
  Country: US (occurrence: US)
  Receive Date: 20190509
  Receipt Date: 20220524
  Transmission Date: 20220721
  Serious: No
  Sender: FDA-Public Use
  Company Number: US-PFIZER INC-2019190824

PATIENT
  Age: 43 Year
  Sex: Female
  Weight: 58.97 kg

DRUGS (2)
  1. HYDROMORPHONE HYDROCHLORIDE [Suspect]
     Active Substance: HYDROMORPHONE HYDROCHLORIDE
     Indication: Crohn^s disease
     Dosage: UNK
  2. HYDROMORPHONE HYDROCHLORIDE [Suspect]
     Active Substance: HYDROMORPHONE HYDROCHLORIDE
     Dosage: 10 MG, EVERY 4 HRS

REACTIONS (6)
  - Abdominal discomfort [Unknown]
  - Rash [Unknown]
  - Hot flush [Unknown]
  - Hyperhidrosis [Unknown]
  - Headache [Unknown]
  - Urticaria [Unknown]
